FAERS Safety Report 13682382 (Version 1)
Quarter: 2017Q2

REPORT INFORMATION
  Report Type: Spontaneous
  Country: US (occurrence: US)
  Receive Date: 20170622
  Receipt Date: 20170622
  Transmission Date: 20170830
  Serious: No
  Sender: FDA-Public Use
  Company Number: None

PATIENT
  Age: 70 Year
  Sex: Female

DRUGS (2)
  1. FORTEO [Suspect]
     Active Substance: TERIPARATIDE
     Indication: OSTEOPOROSIS
     Dosage: APPROX 1 YEAR AGO
     Route: 058
     Dates: end: 201706
  2. FORTEO [Suspect]
     Active Substance: TERIPARATIDE
     Indication: PRODUCT USED FOR UNKNOWN INDICATION
     Dosage: APPROX 1 YEAR AGO
     Route: 058
     Dates: end: 201706

REACTIONS (4)
  - Cough [None]
  - Therapy cessation [None]
  - Pulmonary congestion [None]
  - Secretion discharge [None]

NARRATIVE: CASE EVENT DATE: 201702
